FAERS Safety Report 7636840-5 (Version None)
Quarter: 2011Q3

REPORT INFORMATION
  Report Type: 
  Country: None (occurrence: None)
  Receive Date: 20110726
  Receipt Date: 20110713
  Transmission Date: 20111222
  Serious: Yes (Other)
  Sender: FDA-Public Use
  Company Number: US-ACTELION-A-US2011-51625

PATIENT

DRUGS (2)
  1. VIAGRA [Concomitant]
  2. TRACLEER [Suspect]
     Indication: PULMONARY ARTERIAL HYPERTENSION
     Dosage: UNK
     Route: 048
     Dates: start: 20020829

REACTIONS (4)
  - PULMONARY OEDEMA [None]
  - DYSPNOEA EXERTIONAL [None]
  - FLUID RETENTION [None]
  - COUGH [None]
